FAERS Safety Report 5226652-4 (Version None)
Quarter: 2007Q1

REPORT INFORMATION
  Report Type: 
  Country: None (occurrence: None)
  Receive Date: 20070201
  Receipt Date: 20070118
  Transmission Date: 20070707
  Serious: No
  Sender: FDA-Public Use
  Company Number: US-SHR-US-2006-028104

PATIENT
  Age: 46 Year
  Sex: Female

DRUGS (1)
  1. BETASERON [Suspect]
     Dosage: 8 MIU, EVERY 2D
     Route: 058
     Dates: start: 20020916

REACTIONS (2)
  - FALSE POSITIVE LABORATORY RESULT [None]
  - INJECTION SITE ERYTHEMA [None]
